FAERS Safety Report 7265129-1 (Version None)
Quarter: 2011Q1

REPORT INFORMATION
  Report Type: 
  Country: None (occurrence: None)
  Receive Date: 20110131
  Receipt Date: 20110118
  Transmission Date: 20110831
  Serious: Yes (Hospitalization)
  Sender: FDA-Public Use
  Company Number: NL-MEDIMMUNE-MEDI-0012318

PATIENT
  Sex: Female

DRUGS (3)
  1. SYNAGIS [Suspect]
     Route: 030
     Dates: start: 20100907, end: 20101221
  2. SYNAGIS [Suspect]
     Route: 030
     Dates: start: 20110118, end: 20110118
  3. ESOMEPRAZOLE [Concomitant]

REACTIONS (3)
  - COUGH [None]
  - INFANTILE SPITTING UP [None]
  - PYREXIA [None]
